FAERS Safety Report 8500032 (Version 2)
Quarter: 2014Q2

REPORT INFORMATION
  Report Type: Spontaneous
  Country: US (occurrence: US)
  Receive Date: 20120409
  Receipt Date: 20140522
  Transmission Date: 20141212
  Serious: Yes (Other)
  Sender: FDA-Public Use
  Company Number: US-ROCHE-1056126

PATIENT
  Age: 28 Year
  Sex: Female
  Weight: 74 kg

DRUGS (2)
  1. ACCUTANE [Suspect]
     Indication: PRODUCT USED FOR UNKNOWN INDICATION
     Route: 065
     Dates: start: 20080606, end: 20080706
  2. SOTRET [Suspect]
     Indication: ACNE
     Route: 065
     Dates: start: 200804, end: 200812

REACTIONS (8)
  - Diverticulitis [Unknown]
  - Haemorrhage [Unknown]
  - Intestinal obstruction [Unknown]
  - Depression [Unknown]
  - Suicidal ideation [Unknown]
  - Crohn^s disease [Unknown]
  - Inflammatory bowel disease [Unknown]
  - Irritable bowel syndrome [Unknown]
